FAERS Safety Report 14326510 (Version 1)
Quarter: 2017Q4

REPORT INFORMATION
  Report Type: Spontaneous
  Country: US (occurrence: US)
  Receive Date: 20171226
  Receipt Date: 20171226
  Transmission Date: 20180321
  Serious: Yes (Other)
  Sender: FDA-Public Use
  Company Number: None

PATIENT
  Age: 55 Year
  Weight: 120 kg

DRUGS (2)
  1. YESCARTA [Suspect]
     Active Substance: AXICABTAGENE CILOLEUCEL
     Indication: DIFFUSE LARGE B-CELL LYMPHOMA RECURRENT
     Dosage: ?          OTHER FREQUENCY:ONCE;?
     Route: 040
     Dates: start: 20171208, end: 20171208
  2. YESCARTA [Suspect]
     Active Substance: AXICABTAGENE CILOLEUCEL
     Indication: DIFFUSE LARGE B-CELL LYMPHOMA REFRACTORY
     Dosage: ?          OTHER FREQUENCY:ONCE;?
     Route: 040
     Dates: start: 20171208, end: 20171208

REACTIONS (13)
  - Condition aggravated [None]
  - Body temperature increased [None]
  - Cytokine release syndrome [None]
  - Hypoxia [None]
  - Respiratory failure [None]
  - Dialysis [None]
  - Hypotension [None]
  - Blood lactate dehydrogenase increased [None]
  - Haemodynamic instability [None]
  - Renal failure [None]
  - Sepsis [None]
  - Disease progression [None]
  - Atrial fibrillation [None]

NARRATIVE: CASE EVENT DATE: 20171220
